FAERS Safety Report 17301021 (Version 1)
Quarter: 2020Q1

REPORT INFORMATION
  Report Type: Spontaneous
  Country: US (occurrence: US)
  Receive Date: 20200122
  Receipt Date: 20200122
  Transmission Date: 20200409
  Serious: No
  Sender: FDA-Public Use
  Company Number: NVSC2020US014825

PATIENT
  Age: 54 Year
  Sex: Female

DRUGS (2)
  1. PIQRAY [Suspect]
     Active Substance: ALPELISIB
     Dosage: 150 MG, QD
     Route: 048
  2. PIQRAY [Suspect]
     Active Substance: ALPELISIB
     Indication: BREAST CANCER
     Dosage: 300 MG, QD
     Route: 048
     Dates: start: 20191031

REACTIONS (7)
  - Pyrexia [Recovered/Resolved]
  - Nausea [Recovered/Resolved]
  - Fatigue [Recovered/Resolved]
  - Chills [Recovered/Resolved]
  - Mucosal inflammation [Recovered/Resolved]
  - Vomiting [Recovered/Resolved]
  - Rash [Recovered/Resolved]
